FAERS Safety Report 21745653 (Version 1)
Quarter: 2022Q4

REPORT INFORMATION
  Report Type: Spontaneous
  Country: US (occurrence: US)
  Receive Date: 20221219
  Receipt Date: 20221219
  Transmission Date: 20230113
  Serious: No
  Sender: FDA-Public Use
  Company Number: US-GSK-US2022AMR187882

PATIENT
  Sex: Female

DRUGS (1)
  1. BENLYSTA [Suspect]
     Active Substance: BELIMUMAB
     Indication: Systemic lupus erythematosus
     Dosage: 200 MG, WE (ONCE WEEKLY)
     Route: 058

REACTIONS (3)
  - Influenza [Recovered/Resolved]
  - Oropharyngeal pain [Unknown]
  - Product dose omission issue [Unknown]
